FAERS Safety Report 12283376 (Version 1)
Quarter: 2016Q2

REPORT INFORMATION
  Report Type: Spontaneous
  Country: IT (occurrence: IT)
  Receive Date: 20160419
  Receipt Date: 20160419
  Transmission Date: 20160815
  Serious: Yes (Other)
  Sender: FDA-Public Use
  Company Number: PHHY2016IT050352

PATIENT
  Age: 26 Year
  Sex: Male

DRUGS (7)
  1. DOXORUBICIN [Suspect]
     Active Substance: DOXORUBICIN
     Indication: HODGKIN^S DISEASE
     Dosage: 50 MG, CYCLIC
     Route: 042
     Dates: start: 20160405, end: 20160405
  2. ACICLOVIR [Concomitant]
     Active Substance: ACYCLOVIR
     Indication: PRODUCT USED FOR UNKNOWN INDICATION
     Dosage: 800 MG, UNK
     Route: 048
     Dates: start: 20160309, end: 20160405
  3. OMEPRAZOLE. [Concomitant]
     Active Substance: OMEPRAZOLE
     Indication: PRODUCT USED FOR UNKNOWN INDICATION
     Dosage: 20 MG, UNK
     Route: 048
     Dates: start: 20160309, end: 20160405
  4. VINBLASTINE [Concomitant]
     Active Substance: VINBLASTINE
     Indication: HODGKIN^S DISEASE
     Dosage: 12 MG, UNK
     Route: 042
     Dates: start: 20160309, end: 20160405
  5. BACTRIM [Concomitant]
     Active Substance: SULFAMETHOXAZOLE\TRIMETHOPRIM
     Indication: PRODUCT USED FOR UNKNOWN INDICATION
     Dosage: 1 DF, UNK
     Route: 048
     Dates: start: 20160309, end: 20160405
  6. BLEOMYCIN [Concomitant]
     Active Substance: BLEOMYCIN SULFATE
     Indication: HODGKIN^S DISEASE
     Dosage: 20 MG, UNK
     Route: 042
     Dates: start: 20160309, end: 20160405
  7. DACARBAZINE. [Concomitant]
     Active Substance: DACARBAZINE
     Indication: HODGKIN^S DISEASE
     Dosage: 735 MG, UNK
     Route: 042
     Dates: start: 20160309, end: 20160405

REACTIONS (5)
  - Chest pain [Recovering/Resolving]
  - Electrocardiogram ST segment elevation [Recovering/Resolving]
  - Electrocardiogram T wave biphasic [Recovering/Resolving]
  - Cardiotoxicity [Recovering/Resolving]
  - Electrocardiogram abnormal [Recovering/Resolving]

NARRATIVE: CASE EVENT DATE: 20160405
